FAERS Safety Report 18875255 (Version 2)
Quarter: 2021Q1

REPORT INFORMATION
  Report Type: Spontaneous
  Country: US (occurrence: US)
  Receive Date: 20210210
  Receipt Date: 20210301
  Transmission Date: 20210420
  Serious: No
  Sender: FDA-Public Use
  Company Number: US-BAYER-2021-058772

PATIENT
  Age: 70 Year
  Sex: Male

DRUGS (2)
  1. NUBEQA [Suspect]
     Active Substance: DAROLUTAMIDE
     Indication: PROSTATE CANCER
     Dosage: 600 MG, BID
     Route: 048
     Dates: start: 202101
  2. NUBEQA [Suspect]
     Active Substance: DAROLUTAMIDE
     Indication: METASTASES TO BONE

REACTIONS (3)
  - Off label use [None]
  - Product use in unapproved indication [None]
  - Nausea [Recovering/Resolving]

NARRATIVE: CASE EVENT DATE: 202101
